FAERS Safety Report 4999428-0 (Version None)
Quarter: 2006Q2

REPORT INFORMATION
  Report Type: 
  Country: None (occurrence: None)
  Receive Date: 20060509
  Receipt Date: 20060509
  Transmission Date: 20061013
  Serious: No
  Sender: FDA-Public Use
  Company Number: None

PATIENT
  Age: 60 Year
  Sex: Male
  Weight: 73 kg

DRUGS (12)
  1. TACROLIMUS [Suspect]
     Indication: IMMUNOSUPPRESSION
     Dosage: SEE DESC.
  2. CLOTRIMAZOLE [Concomitant]
  3. INSULIN [Concomitant]
  4. DOCUSATE [Concomitant]
  5. FLUCONAZOLE [Concomitant]
  6. GENTAMICIN [Concomitant]
  7. LANSOPRAZOLE [Concomitant]
  8. LEVOFLOXACIN [Concomitant]
  9. METHYLPREDNISOLONE [Concomitant]
  10. METOPROLOL TARTRATE [Concomitant]
  11. TEMAZEPAM [Concomitant]
  12. VANCOMYCIN [Concomitant]

REACTIONS (9)
  - ABDOMINAL PAIN [None]
  - BLOOD CREATININE INCREASED [None]
  - BLOOD UREA INCREASED [None]
  - DRUG LEVEL INCREASED [None]
  - GENERAL PHYSICAL HEALTH DETERIORATION [None]
  - HAEMODIALYSIS [None]
  - MULTI-ORGAN FAILURE [None]
  - PANCYTOPENIA [None]
  - PYREXIA [None]
